FAERS Safety Report 10896656 (Version 2)
Quarter: 2015Q1

REPORT INFORMATION
  Report Type: Report from Study
  Country: MY (occurrence: MY)
  Receive Date: 20150309
  Receipt Date: 20150319
  Transmission Date: 20150721
  Serious: Yes (Death)
  Sender: FDA-Public Use
  Company Number: MY-JNJFOC-20150203325

PATIENT
  Age: 75 Year
  Sex: Male

DRUGS (1)
  1. ZYTIGA [Suspect]
     Active Substance: ABIRATERONE ACETATE
     Indication: PROSTATE CANCER
     Route: 048

REACTIONS (6)
  - Prostatic specific antigen increased [Unknown]
  - Spinal cord compression [Unknown]
  - Decubitus ulcer [Unknown]
  - Drug resistance [Unknown]
  - Sepsis [Fatal]
  - Death [Fatal]
